FAERS Safety Report 4566987-1 (Version None)
Quarter: 2005Q1

REPORT INFORMATION
  Report Type: 
  Country: None (occurrence: None)
  Receive Date: 20050201
  Receipt Date: 20040223
  Transmission Date: 20050727
  Serious: Yes (Other)
  Sender: FDA-Public Use
  Company Number: US-BRISTOL-MYERS SQUIBB COMPANY-12514816

PATIENT
  Age: 62 Year
  Sex: Female

DRUGS (33)
  1. STADOL [Suspect]
  2. CEPHALEXIN [Concomitant]
  3. ATENOLOL [Concomitant]
  4. TRIMOX [Concomitant]
  5. IBUPROFEN [Concomitant]
  6. TRAZODONE HCL [Concomitant]
  7. VEETIDS [Concomitant]
  8. DIAZEPAM [Concomitant]
  9. BUSPAR [Concomitant]
  10. DIPHENHYDRAMINE HCL [Concomitant]
  11. ISMO [Concomitant]
  12. AMBIEN [Concomitant]
  13. IMIPRAMINE HCL [Concomitant]
  14. LORAZEPAM [Concomitant]
  15. PREMARIN [Concomitant]
     Dosage: 0.625MG
  16. CODEINE PHOSPHATE AND ACETAMINOPHEN [Concomitant]
     Dosage: 300/30MG TABLETS
  17. CHROMAGEN [Concomitant]
  18. RELAFEN [Concomitant]
  19. ULTRAM [Concomitant]
  20. PROMETHAZINE [Concomitant]
  21. PROPOXYPHENE NAPSYLATE [Concomitant]
     Dosage: 100/650MG TABLET
  22. PREDNISONE [Concomitant]
  23. LORABID [Concomitant]
  24. AMITRIPTYLINE [Concomitant]
  25. QUININE SULFATE [Concomitant]
  26. CYPROHEPTADINE HCL [Concomitant]
  27. OXAZEPAM [Concomitant]
  28. DEPAKOTE [Concomitant]
  29. BUTALBITAL + CAFFEINE + ACETAMINOPHEN [Concomitant]
     Dosage: 50/40/350MG TABLETS
  30. HYOSCYAMINE [Concomitant]
     Dosage: 0.125MG TABLET
  31. MECLIZINE [Concomitant]
  32. POLY-HIST FORTE [Concomitant]
  33. DOLGIC [Concomitant]
     Dosage: 650/50MG

REACTIONS (1)
  - DEPENDENCE [None]
